FAERS Safety Report 4767618-8 (Version None)
Quarter: 2005Q3

REPORT INFORMATION
  Report Type: 
  Country: None (occurrence: None)
  Receive Date: 20050909
  Receipt Date: 20050902
  Transmission Date: 20060218
  Serious: Yes (Other)
  Sender: FDA-Public Use
  Company Number: SUS1-2004-00611

PATIENT
  Age: 82 Year
  Sex: Male
  Weight: 68 kg

DRUGS (7)
  1. PENTASA [Suspect]
     Indication: INFLAMMATORY BOWEL DISEASE
     Dosage: FOUR 250 MG CAPSULES, 3X/DAY; TID,
     Dates: start: 20040701
  2. IBUPROFEN [Suspect]
     Indication: INFLAMMATION
     Dosage: 600 MG, 1X/DAY:  QD,
     Dates: start: 20030101, end: 20040901
  3. METOPROLOL TARTRATE [Concomitant]
  4. HYDROCHLOROTHIAZIDE [Concomitant]
  5. NIFEDIPINE [Concomitant]
  6. OMEPRAZOLE [Concomitant]
  7. ASTELIN [Concomitant]

REACTIONS (3)
  - FATIGUE [None]
  - GASTROINTESTINAL INFLAMMATION [None]
  - RENAL IMPAIRMENT [None]
